FAERS Safety Report 20568896 (Version 1)
Quarter: 2022Q1

REPORT INFORMATION
  Report Type: Spontaneous
  Country: US (occurrence: US)
  Receive Date: 20220308
  Receipt Date: 20220308
  Transmission Date: 20220423
  Serious: No
  Sender: FDA-Public Use
  Company Number: US-CELGENE-USA-20220301544

PATIENT
  Age: 86 Year
  Sex: Male

DRUGS (2)
  1. REBLOZYL [Suspect]
     Active Substance: LUSPATERCEPT-AAMT
     Indication: Myelodysplastic syndrome
     Route: 058
     Dates: start: 20200601, end: 20220209
  2. HUMAN RED BLOOD CELL [Concomitant]
     Active Substance: HUMAN RED BLOOD CELL
     Indication: Myelodysplastic syndrome
     Route: 041

REACTIONS (5)
  - Muscle atrophy [Unknown]
  - Weight gain poor [Unknown]
  - Asthenia [Unknown]
  - Dyspnoea [Unknown]
  - Therapeutic product effect decreased [Unknown]

NARRATIVE: CASE EVENT DATE: 20200601
